FAERS Safety Report 5570072-X (Version None)
Quarter: 2007Q4

REPORT INFORMATION
  Report Type: 
  Country: None (occurrence: None)
  Receive Date: 20071214
  Receipt Date: 20071204
  Transmission Date: 20080405
  Serious: Yes (Life-Threatening, Hospitalization, Other)
  Sender: FDA-Public Use
  Company Number: L07-BGR-03620-01

PATIENT
  Age: 28 Year
  Sex: Male

DRUGS (4)
  1. CARBAMAZEPINE [Suspect]
     Dosage: 600 MG QD
  2. CLONIDINE [Concomitant]
  3. DIAZEPAM [Concomitant]
  4. ALCOHOL [Concomitant]

REACTIONS (13)
  - ALCOHOL ABUSE [None]
  - ALCOHOLIC LIVER DISEASE [None]
  - ARTHRALGIA [None]
  - DISORIENTATION [None]
  - DRUG HYPERSENSITIVITY [None]
  - GENERAL PHYSICAL HEALTH DETERIORATION [None]
  - HEPATOSPLENOMEGALY [None]
  - NAIL DISORDER [None]
  - PNEUMONIA HAEMOPHILUS [None]
  - SOMNOLENCE [None]
  - SPUTUM CULTURE POSITIVE [None]
  - TACHYCARDIA [None]
  - TOXIC EPIDERMAL NECROLYSIS [None]
